FAERS Safety Report 11521762 (Version 1)
Quarter: 2015Q3

REPORT INFORMATION
  Report Type: Spontaneous
  Country: US (occurrence: US)
  Receive Date: 20150918
  Receipt Date: 20150918
  Transmission Date: 20151125
  Serious: No
  Sender: FDA-Public Use
  Company Number: US-ROCHE-740107

PATIENT
  Age: 46 Year
  Sex: Female

DRUGS (2)
  1. RIBASPHERE [Suspect]
     Active Substance: RIBAVIRIN
     Indication: HEPATITIS C
     Dosage: DIVIDED DOSES
     Route: 048
  2. PEGASYS [Suspect]
     Active Substance: PEGINTERFERON ALFA-2A
     Indication: HEPATITIS C
     Dosage: FORM: PFS
     Route: 058

REACTIONS (13)
  - Fatigue [Unknown]
  - Rash macular [Unknown]
  - Vomiting [Unknown]
  - Decreased appetite [Unknown]
  - Injection site bruising [Unknown]
  - Pigmentation disorder [Unknown]
  - Dizziness [Unknown]
  - Dry mouth [Unknown]
  - Pain [Unknown]
  - Blister [Unknown]
  - Nausea [Unknown]
  - Weight decreased [Unknown]
  - Pyrexia [Unknown]

NARRATIVE: CASE EVENT DATE: 20101106
